FAERS Safety Report 6349521-5 (Version None)
Quarter: 2009Q3

REPORT INFORMATION
  Report Type: 
  Country: None (occurrence: None)
  Receive Date: 20090911
  Receipt Date: 20090901
  Transmission Date: 20100115
  Serious: Yes (Hospitalization)
  Sender: FDA-Public Use
  Company Number: US-PFIZER INC-2009247685

PATIENT
  Sex: Male

DRUGS (2)
  1. LIPITOR [Suspect]
     Dosage: 10 MG, UNK
  2. ZOCOR [Suspect]
     Dosage: 5 MG, UNK

REACTIONS (6)
  - ARTHRITIS [None]
  - BLOOD CREATINE PHOSPHOKINASE INCREASED [None]
  - EYE DISORDER [None]
  - MYOPATHY [None]
  - PALPITATIONS [None]
  - SKIN ULCER [None]
